FAERS Safety Report 7060016-6 (Version None)
Quarter: 2010Q4

REPORT INFORMATION
  Report Type: 
  Country: None (occurrence: None)
  Receive Date: 20101025
  Receipt Date: 20101015
  Transmission Date: 20110411
  Serious: Yes (Hospitalization)
  Sender: FDA-Public Use
  Company Number: US-PERRIGO-10US013828

PATIENT
  Sex: Female
  Weight: 60.771 kg

DRUGS (2)
  1. HEMORRHOIDAL SUPPOS 394 [Suspect]
     Indication: CONSTIPATION
     Dosage: 1 SUPPOSITORY, SINGLE
     Route: 054
     Dates: start: 20101010, end: 20101010
  2. NATURE'S THYROID [Concomitant]
     Indication: HYPOTHYROIDISM
     Dosage: 30 MG, QD
     Route: 048
     Dates: start: 20080101

REACTIONS (2)
  - BLOOD PRESSURE INCREASED [None]
  - HEART RATE INCREASED [None]
